FAERS Safety Report 8113955-9 (Version None)
Quarter: 2012Q1

REPORT INFORMATION
  Report Type: 
  Country: None (occurrence: None)
  Receive Date: 20120203
  Receipt Date: 20120127
  Transmission Date: 20120608
  Serious: Yes (Other)
  Sender: FDA-Public Use
  Company Number: US-PFIZER INC-2012023149

PATIENT
  Sex: Female
  Weight: 57 kg

DRUGS (19)
  1. PRILOSEC [Concomitant]
     Dosage: 20 MG, 1X/DAY
  2. CHONDROITIN/GLUCOSAMINE [Concomitant]
     Dosage: UNK, 2XDAY
  3. ACETYLSALICYLIC ACID [Concomitant]
     Dosage: 320 MG, 1X/DAY
  4. VITAMIN D [Concomitant]
     Dosage: UNK
  5. MULTI-VITAMINS [Concomitant]
     Dosage: UNK
  6. BUMETANIDE [Concomitant]
     Dosage: 0.5 MG, UNK
  7. PRAVASTATIN [Concomitant]
     Dosage: 10 MG, 1X/DAY
  8. AZELASTINE [Concomitant]
     Dosage: UNK, 2XDAY
  9. EXELON [Concomitant]
     Dosage: 9.5 MG, 1X/DAY
  10. NAMENDA [Concomitant]
     Dosage: 10 MG, 2X/DAY
  11. CALCIUM [Concomitant]
     Dosage: 500 MG, 1X/DAY
  12. ESTRING [Suspect]
     Indication: OFF LABEL USE
     Dosage: UNK
  13. ESTRING [Suspect]
     Indication: VAGINAL PROLAPSE
  14. LOSARTAN [Concomitant]
     Dosage: 50 MG, 1X/DAY
  15. ESTRING [Suspect]
     Indication: BLADDER PROLAPSE
  16. ZOLOFT [Concomitant]
     Dosage: 50 MG, 1X/DAY
  17. ACIDOPHILUS [Concomitant]
     Dosage: UNK
  18. CITRUCEL [Concomitant]
     Dosage: UNK, 2XDAY
  19. FISH OIL [Concomitant]
     Dosage: 1000 MG, 2X/DAY

REACTIONS (2)
  - VAGINAL HAEMORRHAGE [None]
  - VAGINAL EROSION [None]
